FAERS Safety Report 23327846 (Version 1)
Quarter: 2023Q4

REPORT INFORMATION
  Report Type: Spontaneous
  Country: US (occurrence: US)
  Receive Date: 20231221
  Receipt Date: 20231221
  Transmission Date: 20240109
  Serious: Yes (Other)
  Sender: FDA-Public Use
  Company Number: US-ELI_LILLY_AND_COMPANY-US202312008785

PATIENT
  Sex: Female

DRUGS (2)
  1. TRULICITY [Suspect]
     Active Substance: DULAGLUTIDE
     Indication: Type 2 diabetes mellitus
     Dosage: 0.75 MG, UNKNOWN
     Route: 058
     Dates: start: 202306
  2. TRULICITY [Suspect]
     Active Substance: DULAGLUTIDE
     Dosage: 1.5 MG, UNKNOWN
     Route: 058
     Dates: start: 202306

REACTIONS (10)
  - Pemphigoid [Unknown]
  - Renal function test abnormal [Not Recovered/Not Resolved]
  - Globulin abnormal [Unknown]
  - Blood urea nitrogen/creatinine ratio increased [Unknown]
  - Fungal infection [Unknown]
  - Cough [Unknown]
  - Rash pruritic [Not Recovered/Not Resolved]
  - Rash macular [Not Recovered/Not Resolved]
  - Liver function test abnormal [Not Recovered/Not Resolved]
  - Hypersensitivity [Unknown]
